FAERS Safety Report 7079204-8 (Version None)
Quarter: 2010Q4

REPORT INFORMATION
  Report Type: 
  Country: None (occurrence: None)
  Receive Date: 20101102
  Receipt Date: 20101025
  Transmission Date: 20110411
  Serious: Yes (Hospitalization)
  Sender: FDA-Public Use
  Company Number: B0681821A

PATIENT
  Age: 60 Year
  Sex: Male

DRUGS (2)
  1. LAMOTRIGINE [Suspect]
     Indication: STATUS EPILEPTICUS
     Dosage: 25MG PER DAY
     Route: 048
     Dates: start: 20091215, end: 20100113
  2. PREDNISOLONE [Concomitant]
     Dosage: 30MG PER DAY
     Route: 048

REACTIONS (12)
  - ACANTHOSIS [None]
  - DRUG RASH WITH EOSINOPHILIA AND SYSTEMIC SYMPTOMS [None]
  - FACE OEDEMA [None]
  - GENERALISED ERYTHEMA [None]
  - HEPATIC ENZYME INCREASED [None]
  - LYMPHADENOPATHY [None]
  - LYMPHOCYTIC INFILTRATION [None]
  - PALLOR [None]
  - RASH [None]
  - RASH PAPULAR [None]
  - SCAB [None]
  - SKIN OEDEMA [None]
